FAERS Safety Report 21903557 (Version 2)
Quarter: 2023Q1

REPORT INFORMATION
  Report Type: Spontaneous
  Country: DE (occurrence: DE)
  Receive Date: 20230124
  Receipt Date: 20230206
  Transmission Date: 20230417
  Serious: Yes (Hospitalization, Other)
  Sender: FDA-Public Use
  Company Number: DE-VELOXIS PHARMACEUTICALS, INC.-2022-VEL-00803

PATIENT
  Age: 37 Year
  Sex: Female
  Weight: 55 kg

DRUGS (9)
  1. ENVARSUS XR [Suspect]
     Active Substance: TACROLIMUS
     Indication: Immunosuppressant drug therapy
     Dosage: 2 MG, QD
     Route: 048
     Dates: start: 20221112
  2. TACROLIMUS [Suspect]
     Active Substance: TACROLIMUS
     Indication: Product used for unknown indication
     Dosage: 0.75 MILLIGRAM
     Dates: end: 20221225
  3. XIFAXAN [Suspect]
     Active Substance: RIFAXIMIN
     Indication: Hepatic encephalopathy
     Dosage: 550 MG, BID
     Dates: start: 202207
  4. LACTULOSE [Concomitant]
     Active Substance: LACTULOSE
     Indication: Hepatic encephalopathy
     Dosage: UNK
     Dates: start: 202207
  5. CANRENOATE POTASSIUM [Concomitant]
     Active Substance: CANRENOATE POTASSIUM
     Indication: Hepatic encephalopathy
     Dosage: 50 MG, 1X
     Dates: start: 202207
  6. TORSEMIDE [Concomitant]
     Active Substance: TORSEMIDE
     Indication: Hepatic encephalopathy
     Dosage: 10 MG, 1X
     Dates: start: 202207
  7. LEVOTHYROXINE [Concomitant]
     Active Substance: LEVOTHYROXINE
     Indication: Hepatic encephalopathy
     Dosage: 0.5 MG, 1X
     Dates: start: 202207
  8. HEPA MERZ [Concomitant]
     Indication: Hepatic encephalopathy
     Dosage: UNK, GRANULES
     Dates: start: 202207
  9. URSODIOL [Concomitant]
     Active Substance: URSODIOL
     Indication: Hepatic encephalopathy
     Dosage: 250 MG, 3 TIMES
     Dates: start: 202207

REACTIONS (8)
  - Wheelchair user [Unknown]
  - Immobile [Unknown]
  - Blood bilirubin increased [Unknown]
  - Drug clearance decreased [Unknown]
  - Skin discolouration [Unknown]
  - Generalised oedema [Unknown]
  - Depressed mood [Recovered/Resolved]
  - Weight increased [Not Recovered/Not Resolved]

NARRATIVE: CASE EVENT DATE: 20221101
